FAERS Safety Report 7908577-6 (Version None)
Quarter: 2011Q4

REPORT INFORMATION
  Report Type: 
  Country: None (occurrence: None)
  Receive Date: 20111111
  Receipt Date: 20111107
  Transmission Date: 20120403
  Serious: Yes (Other)
  Sender: FDA-Public Use
  Company Number: BR-PFIZER INC-2011271671

PATIENT
  Sex: Female

DRUGS (1)
  1. PREMARIN [Suspect]
     Indication: HORMONE REPLACEMENT THERAPY
     Dosage: 0.3 MG DAILY
     Route: 048
     Dates: start: 20111028

REACTIONS (3)
  - HAEMORRHAGE [None]
  - ABDOMINAL PAIN [None]
  - HEADACHE [None]
